FAERS Safety Report 4355620-X (Version None)
Quarter: 2004Q2

REPORT INFORMATION
  Report Type: 
  Country: None (occurrence: None)
  Receive Date: 20040505
  Receipt Date: 20040420
  Transmission Date: 20050107
  Serious: Yes (Life-Threatening, Hospitalization)
  Sender: FDA-Public Use
  Company Number: 2003AP03985

PATIENT
  Age: 61 Year
  Sex: Male
  Weight: 65 kg

DRUGS (7)
  1. IRESSA [Suspect]
     Indication: PROSTATE CANCER
     Dosage: 250 MG DAILY PO
     Route: 048
     Dates: start: 20031016, end: 20031105
  2. FLUTAMIDE [Suspect]
     Indication: PROSTATE CANCER
     Dosage: 250 MG TID PO
     Route: 048
     Dates: start: 20030601, end: 20031105
  3. DEDRALEN [Concomitant]
  4. NEBILOX [Concomitant]
  5. UNIPRILDIUR [Concomitant]
  6. LANOXIN [Concomitant]
  7. DECAPEPTYL DEPOT [Concomitant]

REACTIONS (1)
  - VENTRICULAR TACHYCARDIA [None]
